FAERS Safety Report 20417114 (Version 1)
Quarter: 2022Q1

REPORT INFORMATION
  Report Type: Spontaneous
  Country: BR (occurrence: BR)
  Receive Date: 20220202
  Receipt Date: 20220202
  Transmission Date: 20220423
  Serious: Yes (Other)
  Sender: FDA-Public Use
  Company Number: BR-ORGANON-O2201BRA002217

PATIENT
  Sex: Female
  Weight: 74 kg

DRUGS (3)
  1. ETONOGESTREL [Suspect]
     Active Substance: ETONOGESTREL
     Indication: Iron deficiency
     Dosage: USING IMPLANON NXT IMPLANT FOR ABOUT 12 YEARS
     Route: 059
  2. ETONOGESTREL [Suspect]
     Active Substance: ETONOGESTREL
     Indication: Menstrual cycle management
     Dosage: 1 DOSAGE FORM
     Route: 059
  3. ETONOGESTREL [Suspect]
     Active Substance: ETONOGESTREL
     Dosage: 1 DOSAGE FORM, LEFT ARM
     Route: 059
     Dates: start: 20181214

REACTIONS (15)
  - Endometriosis [Unknown]
  - Pregnancy with implant contraceptive [Recovered/Resolved]
  - Caesarean section [Recovered/Resolved]
  - Unintended pregnancy [Recovered/Resolved]
  - Complication associated with device [Not Recovered/Not Resolved]
  - Incorrect product administration duration [Unknown]
  - Incorrect product administration duration [Unknown]
  - Incorrect product administration duration [Unknown]
  - Product prescribing issue [Unknown]
  - Overdose [Unknown]
  - Overdose [Unknown]
  - Device use issue [Unknown]
  - Device use issue [Unknown]
  - Product use in unapproved indication [Unknown]
  - Product prescribing issue [Unknown]

NARRATIVE: CASE EVENT DATE: 20160103
